FAERS Safety Report 23606676 (Version 1)
Quarter: 2024Q1

REPORT INFORMATION
  Report Type: Spontaneous
  Country: JP (occurrence: JP)
  Receive Date: 20240307
  Receipt Date: 20240307
  Transmission Date: 20240410
  Serious: Yes (Death)
  Sender: FDA-Public Use
  Company Number: JP-ABBVIE-5669556

PATIENT
  Age: 88 Year
  Sex: Male

DRUGS (2)
  1. VENCLEXTA [Suspect]
     Active Substance: VENETOCLAX
     Indication: Chronic leukaemia
     Route: 048
     Dates: start: 20230308
  2. AZACITIDINE [Concomitant]
     Active Substance: AZACITIDINE
     Indication: Chronic leukaemia

REACTIONS (2)
  - Death [Fatal]
  - Product use in unapproved indication [Unknown]
